FAERS Safety Report 9641813 (Version 1)
Quarter: 2013Q4

REPORT INFORMATION
  Report Type: Spontaneous
  Country: BR (occurrence: BR)
  Receive Date: 20131023
  Receipt Date: 20131023
  Transmission Date: 20140711
  Serious: No
  Sender: FDA-Public Use
  Company Number: BR-009507513-1310BRA006635

PATIENT
  Age: 16 Year
  Sex: Female

DRUGS (1)
  1. REMERON SOLTAB [Suspect]
     Dosage: 1 DF, UNK
     Route: 048
     Dates: start: 20131010, end: 20131010

REACTIONS (1)
  - Sedation [Recovered/Resolved]
